FAERS Safety Report 10670704 (Version 1)
Quarter: 2014Q4

REPORT INFORMATION
  Report Type: Spontaneous
  Country: US (occurrence: US)
  Receive Date: 20141223
  Receipt Date: 20141223
  Transmission Date: 20150529
  Serious: No
  Sender: FDA-Public Use
  Company Number: US-MYLANLABS-2014M1001262

PATIENT
  Age: 74 Year
  Sex: Female
  Weight: 57.14 kg

DRUGS (1)
  1. SELEGILINE HYDROCHLORIDE TABLETS USP [Suspect]
     Active Substance: SELEGILINE HYDROCHLORIDE
     Indication: DEPRESSION
     Dosage: 7.5 MG, QD
     Route: 048
     Dates: start: 20140408, end: 2014

REACTIONS (2)
  - Drug effect decreased [Recovered/Resolved]
  - Depression [Recovered/Resolved]

NARRATIVE: CASE EVENT DATE: 201404
